FAERS Safety Report 7996915-8 (Version None)
Quarter: 2011Q4

REPORT INFORMATION
  Report Type: 
  Country: None (occurrence: None)
  Receive Date: 20111221
  Receipt Date: 20111207
  Transmission Date: 20120403
  Serious: Yes (Other)
  Sender: FDA-Public Use
  Company Number: GB-RANBAXY-2011R1-44087

PATIENT
  Age: 22 Year
  Sex: Female
  Weight: 159 kg

DRUGS (2)
  1. RISPERIDONE [Suspect]
     Indication: BIPOLAR DISORDER
     Dosage: 1 MG, QD
     Route: 065
  2. SERTRALINE HYDROCHLORIDE [Concomitant]
     Indication: BIPOLAR DISORDER
     Dosage: 100 MG, QD
     Route: 065

REACTIONS (2)
  - WEIGHT INCREASED [None]
  - BENIGN INTRACRANIAL HYPERTENSION [None]
